FAERS Safety Report 17669771 (Version 5)
Quarter: 2020Q3

REPORT INFORMATION
  Report Type: Report from Study
  Country: None (occurrence: US)
  Receive Date: 20200415
  Receipt Date: 20200826
  Transmission Date: 20201102
  Serious: Yes (Hospitalization, Other)
  Sender: FDA-Public Use
  Company Number: US-ABBVIE-20K-163-3361009-00

PATIENT
  Age: 33 Year
  Sex: Female
  Weight: 90.8 kg

DRUGS (5)
  1. HUMIRA [Suspect]
     Active Substance: ADALIMUMAB
     Indication: RHEUMATOID ARTHRITIS
  2. HUMIRA [Suspect]
     Active Substance: ADALIMUMAB
     Indication: RHEUMATOID ARTHRITIS
     Dosage: CITRATE FREE
     Route: 058
  3. AZATHIOPRINE. [Suspect]
     Active Substance: AZATHIOPRINE
     Indication: CROHN^S DISEASE
     Route: 065
  4. HUMIRA [Suspect]
     Active Substance: ADALIMUMAB
     Indication: CROHN^S DISEASE
     Route: 058
     Dates: end: 2019
  5. HUMIRA [Suspect]
     Active Substance: ADALIMUMAB
     Indication: CROHN^S DISEASE
     Dosage: CITRATE FREE
     Route: 058
     Dates: start: 2019

REACTIONS (31)
  - Paralysis [Unknown]
  - Constipation [Not Recovered/Not Resolved]
  - Crohn^s disease [Not Recovered/Not Resolved]
  - Crohn^s disease [Recovered/Resolved]
  - Seizure [Recovered/Resolved]
  - Loss of consciousness [Unknown]
  - Dizziness [Unknown]
  - Vision blurred [Recovering/Resolving]
  - Eye irritation [Unknown]
  - Feeling abnormal [Unknown]
  - Blindness [Recovering/Resolving]
  - Anxiety [Not Recovered/Not Resolved]
  - Therapeutic response shortened [Not Recovered/Not Resolved]
  - Small intestinal obstruction [Recovering/Resolving]
  - Corneal abrasion [Recovering/Resolving]
  - Gastric disorder [Not Recovered/Not Resolved]
  - Disorientation [Unknown]
  - Blood test abnormal [Not Recovered/Not Resolved]
  - Influenza [Recovered/Resolved]
  - Constipation [Recovered/Resolved]
  - Gastrointestinal obstruction [Recovered/Resolved]
  - Asthenia [Unknown]
  - Mobility decreased [Unknown]
  - Gastrointestinal oedema [Recovered/Resolved]
  - Somnolence [Unknown]
  - Stress [Recovering/Resolving]
  - Muscle twitching [Recovered/Resolved]
  - Muscle spasms [Not Recovered/Not Resolved]
  - COVID-19 [Not Recovered/Not Resolved]
  - Impaired healing [Unknown]
  - Dehydration [Unknown]

NARRATIVE: CASE EVENT DATE: 201812
